FAERS Safety Report 11403201 (Version 1)
Quarter: 2015Q3

REPORT INFORMATION
  Report Type: Spontaneous
  Country: US (occurrence: None)
  Receive Date: 20150820
  Receipt Date: 20150820
  Transmission Date: 20151125
  Serious: Yes (Other)
  Sender: FDA-Public Use
  Company Number: None

PATIENT
  Age: 90 Year
  Sex: Female
  Weight: 74.84 kg

DRUGS (9)
  1. VITAMIN D [Concomitant]
     Active Substance: CHOLECALCIFEROL
  2. OMEGA (FISH OIL) [Concomitant]
  3. METFORMIN [Concomitant]
     Active Substance: METFORMIN HYDROCHLORIDE
  4. VITAMIN B [Concomitant]
     Active Substance: VITAMIN B
  5. DORZOLAMIDE HCL TIMOLOL MALEATE OPHTHALMIC SOLUTION [Suspect]
     Active Substance: DORZOLAMIDE HYDROCHLORIDE\TIMOLOL MALEATE
     Dates: start: 20150526, end: 20150526
  6. METFORMIN [Concomitant]
     Active Substance: METFORMIN HYDROCHLORIDE
  7. ASPIRIN. [Concomitant]
     Active Substance: ASPIRIN
  8. CRANBERRY. [Concomitant]
     Active Substance: CRANBERRY
  9. LUMIGAN [Concomitant]
     Active Substance: BIMATOPROST

REACTIONS (6)
  - Vision blurred [None]
  - Instillation site pruritus [None]
  - Product substitution issue [None]
  - Instillation site foreign body sensation [None]
  - Skin discolouration [None]
  - Hypersensitivity [None]

NARRATIVE: CASE EVENT DATE: 20150526
